FAERS Safety Report 25708707 (Version 2)
Quarter: 2025Q3

REPORT INFORMATION
  Report Type: Spontaneous
  Country: JP (occurrence: JP)
  Receive Date: 20250821
  Receipt Date: 20250919
  Transmission Date: 20251021
  Serious: Yes (Hospitalization, Other)
  Sender: TAKEDA
  Company Number: JP-TAKEDA-2025TUS073044

PATIENT
  Age: 61 Year
  Sex: Male
  Weight: 52.6 kg

DRUGS (23)
  1. LIALDA [Suspect]
     Active Substance: MESALAMINE
     Indication: Colitis ulcerative
     Dosage: 2400 MILLIGRAM, QD
     Dates: start: 20250418, end: 20250429
  2. SULFASALAZINE [Suspect]
     Active Substance: SULFASALAZINE
     Indication: Colitis ulcerative
     Dosage: 1000 MILLIGRAM, TID
     Dates: start: 20250430
  3. SULFASALAZINE [Suspect]
     Active Substance: SULFASALAZINE
     Dosage: 3000 MILLIGRAM, QD
     Dates: end: 20250516
  4. Daivitamix [Concomitant]
     Dates: start: 20250418, end: 20250419
  5. Daivitamix [Concomitant]
     Dates: start: 20250516, end: 20250516
  6. VEEN D [Concomitant]
     Active Substance: CALCIUM CHLORIDE\DEXTROSE\POTASSIUM CHLORIDE\SODIUM ACETATE\SODIUM CHLORIDE
     Dates: start: 20250417, end: 20250419
  7. FAMOTIDINE [Concomitant]
     Active Substance: FAMOTIDINE
     Dates: start: 20250417, end: 20250419
  8. FAMOTIDINE [Concomitant]
     Active Substance: FAMOTIDINE
     Dates: start: 20250517, end: 20250526
  9. CEFAZOLIN SODIUM [Concomitant]
     Active Substance: CEFAZOLIN SODIUM
     Dates: start: 20250417, end: 20250419
  10. CEFAZOLIN SODIUM [Concomitant]
     Active Substance: CEFAZOLIN SODIUM
     Dates: start: 20250515, end: 20250518
  11. SODIUM CHLORIDE [Concomitant]
     Active Substance: SODIUM CHLORIDE
     Dates: start: 20250417, end: 20250419
  12. SODIUM CHLORIDE [Concomitant]
     Active Substance: SODIUM CHLORIDE
     Dates: start: 20250515, end: 20250518
  13. Fesin [Concomitant]
     Dates: start: 20250419, end: 20250422
  14. DEXTROSE [Concomitant]
     Active Substance: DEXTROSE MONOHYDRATE
     Dates: start: 20250419, end: 20250422
  15. HEPARIN SODIUM [Concomitant]
     Active Substance: HEPARIN SODIUM
     Dates: start: 20250419, end: 20250422
  16. HEPARIN SODIUM [Concomitant]
     Active Substance: HEPARIN SODIUM
  17. BIO-THREE [Concomitant]
     Active Substance: HERBALS
  18. ACETAMINOPHEN [Concomitant]
     Active Substance: ACETAMINOPHEN
     Dates: start: 20250429, end: 20250430
  19. REBAMIPIDE [Concomitant]
     Active Substance: REBAMIPIDE
     Dates: start: 20250429, end: 20250430
  20. ADETPHOS [Concomitant]
     Active Substance: ADENOSINE TRIPHOSPHATE
     Dates: start: 20250430, end: 20250515
  21. METHYLCOBALAMIN [Concomitant]
     Active Substance: METHYLCOBALAMIN
     Dates: start: 20250430, end: 20250515
  22. KALLIDINOGENASE [Concomitant]
     Active Substance: KALLIDINOGENASE
     Dates: start: 20250430, end: 20250515
  23. SOLDEM 3A [Concomitant]
     Active Substance: CARBOHYDRATES\POTASSIUM CHLORIDE\SODIUM CHLORIDE\SODIUM LACTATE
     Dates: start: 20250417, end: 20250419

REACTIONS (4)
  - Pyrexia [Recovered/Resolved]
  - Rash [Recovered/Resolved]
  - Pneumonia [Recovered/Resolved]
  - Hyponatraemia [Recovered/Resolved]

NARRATIVE: CASE EVENT DATE: 20250427
